FAERS Safety Report 6969272-3 (Version None)
Quarter: 2010Q3

REPORT INFORMATION
  Report Type: 
  Country: None (occurrence: None)
  Receive Date: 20100902
  Receipt Date: 20100823
  Transmission Date: 20110219
  Serious: No
  Sender: FDA-Public Use
  Company Number: 2010SP043257

PATIENT
  Age: 45 Year
  Sex: Female

DRUGS (4)
  1. ROCURONIUM BROMIDE [Suspect]
     Indication: MUSCLE RELAXANT THERAPY
     Dosage: 30 MG; ONCE; IV, 6 MG; ONCE; IV
     Route: 042
     Dates: start: 20100804
  2. ROCURONIUM BROMIDE [Suspect]
     Indication: MUSCLE RELAXANT THERAPY
     Dosage: 30 MG; ONCE; IV, 6 MG; ONCE; IV
     Route: 042
     Dates: start: 20100804
  3. PROPOFOL [Suspect]
     Indication: GENERAL ANAESTHESIA
     Dosage: 80 MG; IV
     Route: 042
     Dates: start: 20100804
  4. FENTANYL CITRATE [Concomitant]

REACTIONS (3)
  - PHLEBITIS [None]
  - PROCEDURAL COMPLICATION [None]
  - VEIN DISCOLOURATION [None]
